FAERS Safety Report 9014714 (Version 2)
Quarter: 2013Q1

REPORT INFORMATION
  Report Type: Report from Study
  Country: IT (occurrence: IT)
  Receive Date: 20130115
  Receipt Date: 20130226
  Transmission Date: 20140127
  Serious: Yes (Hospitalization)
  Sender: FDA-Public Use
  Company Number: IT-TEVA-380032USA

PATIENT
  Age: 62 Year
  Sex: Female
  Weight: 75 kg

DRUGS (5)
  1. TREANDA [Suspect]
     Indication: NON-HODGKIN^S LYMPHOMA UNSPECIFIED HISTOLOGY INDOLENT
     Route: 042
     Dates: start: 20121210
  2. AFUTUZUMAB [Suspect]
     Indication: NON-HODGKIN^S LYMPHOMA UNSPECIFIED HISTOLOGY INDOLENT
     Route: 042
     Dates: start: 20121210
  3. PREDNISONE [Concomitant]
     Indication: TUMOUR LYSIS SYNDROME
     Dates: start: 20121210
  4. CIPROFLOXACIN [Concomitant]
     Indication: INFECTION PROPHYLAXIS
     Dates: start: 20121213, end: 20121217
  5. PARACETAMOL [Concomitant]
     Indication: PYREXIA
     Dates: start: 20121213, end: 20121215

REACTIONS (2)
  - Pleural effusion [Recovered/Resolved]
  - Dyspnoea [Recovered/Resolved]
